FAERS Safety Report 18367461 (Version 1)
Quarter: 2020Q4

REPORT INFORMATION
  Report Type: Spontaneous
  Country: US (occurrence: US)
  Receive Date: 20201009
  Receipt Date: 20201009
  Transmission Date: 20210114
  Serious: Yes (Other)
  Sender: FDA-Public Use
  Company Number: US-ANIPHARMA-2020-US-020553

PATIENT
  Age: 91 Year
  Sex: Female

DRUGS (2)
  1. ARIMIDEX [Suspect]
     Active Substance: ANASTROZOLE
     Indication: BREAST CANCER
     Route: 065
  2. FASLODEX [Suspect]
     Active Substance: FULVESTRANT
     Route: 065

REACTIONS (8)
  - Discharge [Not Recovered/Not Resolved]
  - Disease progression [Unknown]
  - Metastases to lymph nodes [Not Recovered/Not Resolved]
  - Metastases to lung [Not Recovered/Not Resolved]
  - Tumour marker increased [Unknown]
  - Positron emission tomogram abnormal [Unknown]
  - Breast mass [Not Recovered/Not Resolved]
  - Abdominal wall anomaly [Not Recovered/Not Resolved]
